FAERS Safety Report 9627432 (Version 2)
Quarter: 2013Q4

REPORT INFORMATION
  Report Type: Not Available
  Country: US (occurrence: US)
  Receive Date: 20131016
  Receipt Date: 20131016
  Transmission Date: 20140711
  Serious: Yes (Life-Threatening, Hospitalization, Disabling)
  Sender: FDA-Public Use
  Company Number: US-LUNDBECK-DKLU1087758

PATIENT
  Age: 69 Year
  Sex: Male
  Weight: 61 kg

DRUGS (24)
  1. SABRIL [Suspect]
     Indication: COMPLEX PARTIAL SEIZURES
     Route: 048
     Dates: start: 20121103, end: 20121105
  2. SABRIL [Suspect]
     Route: 048
     Dates: start: 20121106, end: 20121112
  3. SABRIL [Suspect]
     Route: 048
     Dates: start: 20121113, end: 20121121
  4. SABRIL [Suspect]
     Route: 048
     Dates: start: 20121113, end: 20121121
  5. SABRIL [Suspect]
     Route: 048
     Dates: start: 20121122, end: 20130116
  6. SABRIL [Suspect]
     Route: 048
     Dates: start: 20130117, end: 20130117
  7. SABRIL [Suspect]
     Route: 048
     Dates: start: 20130118, end: 20130211
  8. SABRIL [Suspect]
     Route: 048
     Dates: start: 20130118, end: 20130211
  9. LISINOPRIL [Concomitant]
     Indication: HYPERTENSION
     Route: 048
     Dates: start: 2004
  10. MELATONIN [Concomitant]
     Indication: SLEEP DISORDER
     Route: 048
  11. KLONOPIN [Concomitant]
     Indication: EPILEPSY
     Route: 048
     Dates: start: 1990
  12. TOPAMAX [Concomitant]
     Indication: EPILEPSY
     Route: 048
     Dates: start: 200509
  13. METOPROLOL [Concomitant]
     Indication: HYPERTENSION
     Route: 048
     Dates: start: 20130107, end: 20130204
  14. MYSTATIN TOPICAL POWDER [Concomitant]
     Indication: PROPHYLAXIS
     Route: 050
     Dates: start: 20130107, end: 20130204
  15. VIMPAT [Concomitant]
     Indication: EPILEPSY
     Route: 048
     Dates: start: 201207
  16. CALCIUM [Concomitant]
     Indication: VITAMIN SUPPLEMENTATION
     Route: 048
     Dates: start: 2008
  17. MAGNESIUM [Concomitant]
     Indication: VITAMIN SUPPLEMENTATION
     Route: 048
     Dates: start: 2008
  18. VITAMIN D3 [Concomitant]
     Indication: VITAMIN SUPPLEMENTATION
     Route: 048
     Dates: start: 2008
  19. CO-Q10 [Concomitant]
     Indication: VITAMIN SUPPLEMENTATION
     Route: 048
     Dates: start: 2008
  20. EPA-DHA [Concomitant]
     Indication: VITAMIN SUPPLEMENTATION
     Route: 048
     Dates: start: 2008
  21. TUMERIC (CUCURMIN) [Concomitant]
     Indication: VITAMIN SUPPLEMENTATION
     Route: 048
     Dates: start: 2011
  22. VITAMIN B COMPLEX [Concomitant]
     Indication: VITAMIN SUPPLEMENTATION
     Route: 048
     Dates: start: 2009
  23. PROBIOTIC [Concomitant]
     Indication: VITAMIN SUPPLEMENTATION
     Route: 048
     Dates: start: 1992
  24. CITRUCIL [Concomitant]
     Indication: VITAMIN SUPPLEMENTATION
     Dosage: 2 TBSP
     Route: 048
     Dates: start: 201110

REACTIONS (1)
  - Convulsion [Recovered/Resolved]
